FAERS Safety Report 8102089-5 (Version None)
Quarter: 2012Q1

REPORT INFORMATION
  Report Type: 
  Country: None (occurrence: None)
  Receive Date: 20120131
  Receipt Date: 20120127
  Transmission Date: 20120608
  Serious: Yes (Death)
  Sender: FDA-Public Use
  Company Number: PE-MERCK-1110PER00006

PATIENT
  Age: 55 Year
  Sex: Male

DRUGS (1)
  1. ZOLINZA [Suspect]
     Indication: MYCOSIS FUNGOIDES
     Route: 048
     Dates: start: 20110901, end: 20111001

REACTIONS (1)
  - MYCOSIS FUNGOIDES [None]
